FAERS Safety Report 10639243 (Version 1)
Quarter: 2014Q4

REPORT INFORMATION
  Report Type: Spontaneous
  Country: FR (occurrence: FR)
  Receive Date: 20141208
  Receipt Date: 20141208
  Transmission Date: 20150529
  Serious: Yes (Other)
  Sender: FDA-Public Use
  Company Number: FR-ABBVIE-14P-056-1317845-00

PATIENT
  Age: 26 Year
  Sex: Female

DRUGS (4)
  1. DEPAKINE CHRONO [Suspect]
     Active Substance: VALPROATE SODIUM
     Indication: EPILEPSY
     Route: 048
     Dates: start: 199508, end: 200307
  2. DEPAKINE CHRONO [Suspect]
     Active Substance: VALPROATE SODIUM
     Route: 048
     Dates: start: 201202
  3. DEPAKINE CHRONO [Suspect]
     Active Substance: VALPROATE SODIUM
     Route: 048
     Dates: start: 200307
  4. DEPAKINE CHRONO [Suspect]
     Active Substance: VALPROATE SODIUM
     Route: 048
     Dates: end: 20120227

REACTIONS (17)
  - Drug ineffective [Unknown]
  - Electroencephalogram abnormal [Unknown]
  - Fall [Unknown]
  - Microcephaly [Unknown]
  - Cerebral atrophy [Unknown]
  - Femur fracture [Unknown]
  - Encephalopathy [Unknown]
  - Petit mal epilepsy [Unknown]
  - Anticonvulsant drug level abnormal [Unknown]
  - Mental disorder [Unknown]
  - Cerebellar atrophy [Unknown]
  - Complex partial seizures [Unknown]
  - Febrile convulsion [Unknown]
  - Body height increased [Unknown]
  - Social avoidant behaviour [Unknown]
  - Weight increased [Unknown]
  - Hyperventilation [Unknown]

NARRATIVE: CASE EVENT DATE: 19950923
